FAERS Safety Report 7278985-8 (Version None)
Quarter: 2011Q1

REPORT INFORMATION
  Report Type: 
  Country: None (occurrence: None)
  Receive Date: 20110207
  Receipt Date: 20110126
  Transmission Date: 20110831
  Serious: Yes (Other)
  Sender: FDA-Public Use
  Company Number: PHHY2011IT08194

PATIENT
  Sex: Female

DRUGS (4)
  1. VINCRISTINE [Concomitant]
  2. DEXAMETHASONE [Concomitant]
  3. ZOMETA [Suspect]
     Indication: METASTASES TO BONE
     Dosage: 4 MG, PER 5 ML
     Route: 042
     Dates: start: 20050101, end: 20100701
  4. DOXORUBICIN HCL [Concomitant]

REACTIONS (1)
  - OSTEONECROSIS OF JAW [None]
